FAERS Safety Report 10058782 (Version 1)
Quarter: 2014Q2

REPORT INFORMATION
  Report Type: Report from Study
  Country: BR (occurrence: BR)
  Receive Date: 20140404
  Receipt Date: 20140404
  Transmission Date: 20141212
  Serious: Yes (Hospitalization)
  Sender: FDA-Public Use
  Company Number: BR-US-EMD SERONO, INC.-7278798

PATIENT
  Sex: Male

DRUGS (11)
  1. REBIF [Suspect]
     Indication: RELAPSING-REMITTING MULTIPLE SCLEROSIS
     Dates: start: 20090409
  2. GABAPENTINE [Concomitant]
     Indication: PRODUCT USED FOR UNKNOWN INDICATION
  3. SOTALOL HYDROCHLORIDE [Concomitant]
     Indication: PRODUCT USED FOR UNKNOWN INDICATION
  4. LOSARTAN [Concomitant]
     Indication: PRODUCT USED FOR UNKNOWN INDICATION
  5. METFORMIN [Concomitant]
     Indication: PRODUCT USED FOR UNKNOWN INDICATION
  6. AMLODIPINE [Concomitant]
     Indication: PRODUCT USED FOR UNKNOWN INDICATION
  7. PROLOPA [Concomitant]
     Indication: PRODUCT USED FOR UNKNOWN INDICATION
  8. GLIBENCLAMIDE [Concomitant]
     Indication: PRODUCT USED FOR UNKNOWN INDICATION
  9. PANTOPRAZOLE [Concomitant]
     Indication: PRODUCT USED FOR UNKNOWN INDICATION
  10. CATAFLAM                           /00372302/ [Concomitant]
     Indication: PRODUCT USED FOR UNKNOWN INDICATION
  11. MAREVAN [Concomitant]
     Indication: PRODUCT USED FOR UNKNOWN INDICATION

REACTIONS (7)
  - Urinary incontinence [Unknown]
  - Gait disturbance [Unknown]
  - Blood glucose abnormal [Unknown]
  - Blood cholesterol abnormal [Unknown]
  - Blood triglycerides abnormal [Unknown]
  - Muscular weakness [Unknown]
  - Pain [Not Recovered/Not Resolved]
